FAERS Safety Report 7633170-2 (Version None)
Quarter: 2011Q3

REPORT INFORMATION
  Report Type: 
  Country: None (occurrence: None)
  Receive Date: 20110725
  Receipt Date: 20110720
  Transmission Date: 20111222
  Serious: Yes (Other)
  Sender: FDA-Public Use
  Company Number: ES-PFIZER INC-2011164263

PATIENT
  Age: 67 Year
  Sex: Male

DRUGS (5)
  1. DISGREN [Concomitant]
     Indication: VENOUS INSUFFICIENCY
     Dosage: 600 MG, 1X/DAY
     Route: 048
  2. ENALAPRIL [Concomitant]
     Indication: HYPERTENSION
     Dosage: 10 MG, 1X/DAY
     Route: 048
  3. GLYBURIDE [Concomitant]
     Indication: TYPE 2 DIABETES MELLITUS
     Dosage: 5 MG, 1X/DAY
     Route: 048
  4. RANITIDINE [Concomitant]
     Dosage: 300 MG, 1X/DAY
     Route: 048
  5. SUTENT [Suspect]
     Indication: RENAL CANCER METASTATIC
     Dosage: 37.5 MG, 1X/DAY
     Route: 048
     Dates: start: 20110202, end: 20110509

REACTIONS (1)
  - OESOPHAGITIS [None]
